FAERS Safety Report 18967683 (Version 1)
Quarter: 2021Q1

REPORT INFORMATION
  Report Type: Spontaneous
  Country: US (occurrence: US)
  Receive Date: 20210303
  Receipt Date: 20210303
  Transmission Date: 20210420
  Serious: Yes (Life-Threatening, Hospitalization, Disabling, Other)
  Sender: FDA-Public Use
  Company Number: None

PATIENT
  Age: 65 Year
  Sex: Female
  Weight: 46.8 kg

DRUGS (11)
  1. BROCCOLI SPROUTS [Concomitant]
  2. VITAMIN D [Concomitant]
     Active Substance: VITAMIN D NOS
  3. ELDERBERRY EXTRACT [Concomitant]
  4. FOLATE [Concomitant]
     Active Substance: FOLATE SODIUM
  5. MILK THISTLE [Concomitant]
     Active Substance: DIETARY SUPPLEMENT\HERBALS\MILK THISTLE
  6. ESTRADIOL. [Suspect]
     Active Substance: ESTRADIOL
     Indication: ATROPHIC VULVOVAGINITIS
     Dosage: ?          QUANTITY:1 GRAM;OTHER FREQUENCY:2 TIMES A WEEK;?
     Route: 067
     Dates: start: 20131211, end: 20200522
  7. MULTIVITAMIN [Concomitant]
     Active Substance: VITAMINS
  8. DIM [Concomitant]
  9. SULFORAPHANE. [Concomitant]
     Active Substance: SULFORAPHANE
  10. VITAMIN K [Concomitant]
     Active Substance: PHYTONADIONE
  11. NINGXIA RED [Concomitant]

REACTIONS (1)
  - Breast cancer [None]

NARRATIVE: CASE EVENT DATE: 20200522
